FAERS Safety Report 5160173-2 (Version None)
Quarter: 2006Q4

REPORT INFORMATION
  Report Type: 
  Country: None (occurrence: None)
  Receive Date: 20061129
  Receipt Date: 20061004
  Transmission Date: 20070319
  Serious: Yes (Hospitalization)
  Sender: FDA-Public Use
  Company Number: US-BRISTOL-MYERS SQUIBB COMPANY-13530555

PATIENT
  Age: 53 Year
  Sex: Female
  Weight: 103 kg

DRUGS (10)
  1. PACLITAXEL [Suspect]
     Indication: LUNG NEOPLASM MALIGNANT
     Route: 042
     Dates: start: 20060901, end: 20060901
  2. CARBOPLATIN [Suspect]
     Indication: LUNG NEOPLASM MALIGNANT
     Route: 042
     Dates: start: 20060901, end: 20060901
  3. DILTIAZEM HCL [Concomitant]
     Route: 048
     Dates: start: 20030201
  4. FEXOFENADINE HCL [Concomitant]
     Route: 048
     Dates: start: 20040101
  5. TROSPIUM CHLORIDE [Concomitant]
     Route: 048
     Dates: start: 20050801
  6. FLUTICASONE PROPIONATE [Concomitant]
     Route: 055
     Dates: start: 20040101
  7. FLUTICASONE PROPIONATE [Concomitant]
     Route: 045
     Dates: start: 20040101
  8. LANSOPRAZOLE [Concomitant]
     Route: 048
     Dates: start: 19990101
  9. OXYCODONE HCL + ACETAMINOPHEN [Concomitant]
     Route: 048
     Dates: start: 20060831
  10. DEXAMETHASONE TAB [Concomitant]
     Route: 048
     Dates: start: 20060905

REACTIONS (1)
  - SMALL INTESTINAL OBSTRUCTION [None]
